FAERS Safety Report 5212780-6 (Version None)
Quarter: 2007Q1

REPORT INFORMATION
  Report Type: 
  Country: None (occurrence: None)
  Receive Date: 20070118
  Receipt Date: 20070118
  Transmission Date: 20070707
  Serious: Yes (Hospitalization)
  Sender: FDA-Public Use
  Company Number: None

PATIENT
  Sex: Male

DRUGS (11)
  1. TERAZOSIN HCL [Suspect]
     Indication: BENIGN PROSTATIC HYPERPLASIA
     Dosage: 7 MG HS PO
     Route: 048
  2. TERAZOSIN 2 MG [Suspect]
     Indication: BENIGN PROSTATIC HYPERPLASIA
     Dosage: 7 MG HS PO
     Route: 048
  3. ALENDRONATE SODIUM [Concomitant]
  4. CYANOCOBALAMIN [Concomitant]
  5. LISINOPRIL [Concomitant]
  6. NAPROXEN [Concomitant]
  7. NIACIN [Concomitant]
  8. OXYBUTYNIN [Concomitant]
  9. PRIMIDONE [Concomitant]
  10. RABEPRAZOLE SODIUM [Concomitant]
  11. TRAVAPROST [Concomitant]

REACTIONS (3)
  - DIZZINESS [None]
  - ELECTROCARDIOGRAM T WAVE INVERSION [None]
  - HYPOTENSION [None]
